FAERS Safety Report 8270778-8 (Version None)
Quarter: 2012Q2

REPORT INFORMATION
  Report Type: 
  Country: None (occurrence: None)
  Receive Date: 20120410
  Receipt Date: 20120329
  Transmission Date: 20120825
  Serious: Yes (Hospitalization, Other)
  Sender: FDA-Public Use
  Company Number: US-ROCHE-1049970

PATIENT
  Sex: Male

DRUGS (3)
  1. SINGULAIR [Concomitant]
     Indication: ASTHMA
     Route: 048
     Dates: start: 20090115, end: 20120309
  2. XOLAIR [Suspect]
     Indication: ASTHMA
     Route: 042
     Dates: start: 20090514, end: 20120309
  3. ADVAIR DISKUS 100/50 [Concomitant]
     Indication: ASTHMA
     Dosage: 250/50
     Dates: start: 20090115, end: 20120309

REACTIONS (3)
  - HYPOAESTHESIA [None]
  - ALLERGIC GRANULOMATOUS ANGIITIS [None]
  - ABASIA [None]
